FAERS Safety Report 22270461 (Version 1)
Quarter: 2023Q2

REPORT INFORMATION
  Report Type: Spontaneous
  Country: US (occurrence: None)
  Receive Date: 20230429
  Receipt Date: 20230429
  Transmission Date: 20230721
  Serious: Yes (Disabling)
  Sender: FDA-Public Use
  Company Number: None

PATIENT
  Age: 63 Year
  Sex: Female
  Weight: 58.5 kg

DRUGS (1)
  1. ESOMEPRAZOLE MAGNESIUM [Suspect]
     Active Substance: ESOMEPRAZOLE MAGNESIUM
     Indication: Gastrooesophageal reflux disease
     Dosage: 1 CAPSULE TWICE A DAY ORAL
     Route: 048
     Dates: start: 20230222, end: 20230415

REACTIONS (5)
  - Drug ineffective [None]
  - Gastrooesophageal reflux disease [None]
  - Paradoxical drug reaction [None]
  - Product formulation issue [None]
  - Product formulation issue [None]

NARRATIVE: CASE EVENT DATE: 20230415
